FAERS Safety Report 9296470 (Version 1)
Quarter: 2013Q2

REPORT INFORMATION
  Report Type: Spontaneous
  Country: CA (occurrence: CA)
  Receive Date: 20130517
  Receipt Date: 20130517
  Transmission Date: 20140414
  Serious: Yes (Death, Other)
  Sender: FDA-Public Use
  Company Number: CA-OTSUKA-US-2013-10934

PATIENT
  Age: 5 Month
  Sex: Male

DRUGS (8)
  1. CYCLOSPORINE [Concomitant]
     Indication: PROPHYLAXIS AGAINST GRAFT VERSUS HOST DISEASE
     Dosage: UNK UNKNOWN, UNKNOWN
     Route: 065
  2. METHOTREXATE [Concomitant]
     Indication: PROPHYLAXIS AGAINST GRAFT VERSUS HOST DISEASE
     Dosage: UNK UNKNOWN, UNKNOWN
     Route: 065
  3. GANCICLOVIR [Concomitant]
     Indication: ANTIVIRAL PROPHYLAXIS
     Dosage: UNK UNKNOWN, UNKNOWN
     Route: 065
  4. FLUCONAZOLE [Concomitant]
     Indication: ANTIFUNGAL PROPHYLAXIS
     Dosage: UNK UNKNOWN, UNKNOWN
     Route: 065
  5. PENICILIN G [Concomitant]
     Indication: ANTIBIOTIC PROPHYLAXIS
     Dosage: UNK UNKNOWN, UNKNOWN
     Route: 065
  6. BUSULFEX [Suspect]
     Indication: STEM CELL TRANSPLANT
     Dosage: UNK UNKNOWN, UNKNOWN
     Route: 042
  7. CYCLOPHOSPHAMIDE MONOHYDRATE [Concomitant]
     Indication: STEM CELL TRANSPLANT
     Dosage: UNK UNKNOWN, UNKNOWN
     Route: 065
  8. ETOPOSIDE [Concomitant]
     Indication: STEM CELL TRANSPLANT
     Dosage: UNK UNKNOWN, UNKNOWN
     Route: 065

REACTIONS (6)
  - Death [Fatal]
  - Bacillus infection [Unknown]
  - Renal impairment [Unknown]
  - Diffuse alveolar damage [Unknown]
  - Pulmonary hypertension [Unknown]
  - Hypertension [Unknown]
